FAERS Safety Report 6423006-X (Version None)
Quarter: 2009Q4

REPORT INFORMATION
  Report Type: 
  Country: None (occurrence: None)
  Receive Date: 20091028
  Receipt Date: 20091014
  Transmission Date: 20100525
  Serious: Yes (Death, Hospitalization)
  Sender: FDA-Public Use
  Company Number: AE 02009-123

PATIENT
  Age: 49 Year
  Sex: Female

DRUGS (4)
  1. FAZACLO ODT [Suspect]
     Indication: SCHIZOPHRENIA
     Dosage: 75MG QAM + 75MG QHS PO
     Route: 048
     Dates: start: 20061106, end: 20090801
  2. DEPAKOTE [Concomitant]
  3. CELEXA [Concomitant]
  4. COGENTIN [Concomitant]

REACTIONS (3)
  - COMA [None]
  - INTESTINAL OBSTRUCTION [None]
  - INTESTINAL PERFORATION [None]
